FAERS Safety Report 5716893-1 (Version None)
Quarter: 2008Q2

REPORT INFORMATION
  Report Type: 
  Country: None (occurrence: None)
  Receive Date: 20080424
  Receipt Date: 20080328
  Transmission Date: 20081010
  Serious: No
  Sender: FDA-Public Use
  Company Number: US-BOEHRINGER INGELHEIM GMBH, GERMANY-2008-BP-00434BP

PATIENT
  Age: 65 Year
  Sex: Female
  Weight: 49 kg

DRUGS (13)
  1. SPIRIVA [Suspect]
     Indication: CHRONIC OBSTRUCTIVE PULMONARY DISEASE
     Route: 055
     Dates: start: 20080102, end: 20080114
  2. VITAMINS + SUPPLEMENTS [Concomitant]
  3. NAPROXEN [Concomitant]
  4. PERCOCET [Concomitant]
  5. ASPIRIN [Concomitant]
  6. M.V.I. [Concomitant]
  7. VITAMIN B-12 [Concomitant]
  8. LASIX [Concomitant]
  9. VAGIFEM [Concomitant]
  10. ZYPREXA [Concomitant]
  11. ATROVENT [Concomitant]
  12. OXYCONTIN [Concomitant]
  13. MUCINEX [Concomitant]

REACTIONS (1)
  - COUGH [None]
